FAERS Safety Report 8392328 (Version 2)
Quarter: 2013Q4

REPORT INFORMATION
  Report Type: Spontaneous
  Country: CN (occurrence: CN)
  Receive Date: 20120206
  Receipt Date: 20131105
  Transmission Date: 20140711
  Serious: Yes (Other)
  Sender: FDA-Public Use
  Company Number: PHHY2012CN008995

PATIENT
  Age: 20 Year
  Sex: Male

DRUGS (2)
  1. SEBIVO [Suspect]
     Indication: HEPATITIS B
     Dosage: 600 MG DAILY
     Route: 048
     Dates: start: 20110101, end: 20120121
  2. ADEFOVIR DIPIVOXIL [Concomitant]
     Indication: CHRONIC HEPATITIS B

REACTIONS (6)
  - Blood uric acid increased [Unknown]
  - Local swelling [Unknown]
  - Oedema peripheral [Unknown]
  - Blood creatine phosphokinase increased [Unknown]
  - Muscular weakness [Unknown]
  - Myalgia [Unknown]
